FAERS Safety Report 5284737-0 (Version None)
Quarter: 2007Q1

REPORT INFORMATION
  Report Type: 
  Country: None (occurrence: None)
  Receive Date: 20061226
  Receipt Date: 20061016
  Transmission Date: 20070707
  Serious: No
  Sender: FDA-Public Use
  Company Number: 2005PV000575

PATIENT
  Age: 58 Year
  Sex: Male
  Weight: 141.0687 kg

DRUGS (14)
  1. SYMLIN [Suspect]
     Indication: DIABETES MELLITUS NON-INSULIN-DEPENDENT
     Dosage: SEE IMAGE
     Route: 058
     Dates: start: 20050101, end: 20061013
  2. SYMLIN [Suspect]
     Indication: DIABETES MELLITUS NON-INSULIN-DEPENDENT
     Dosage: SEE IMAGE
     Route: 058
     Dates: start: 20050713
  3. GLUCOPHAGE [Concomitant]
  4. AVALIDE [Concomitant]
  5. CLONIDINE [Concomitant]
  6. DYNACIRC [Concomitant]
  7. CHOLESTEROL MED [Concomitant]
  8. ASPIRIN [Concomitant]
  9. VITAMINS [Concomitant]
  10. GRAPESEED EXTRACT [Concomitant]
  11. INDIAN SUPPLEMENT FOR DIABETES [Concomitant]
  12. INSULIN [Concomitant]
  13. U500 INSULIN PUMP [Concomitant]
  14. METFORMIN [Concomitant]

REACTIONS (3)
  - EARLY SATIETY [None]
  - NAUSEA [None]
  - WEIGHT DECREASED [None]
